FAERS Safety Report 23859532 (Version 2)
Quarter: 2024Q3

REPORT INFORMATION
  Report Type: Report from Study
  Country: US (occurrence: US)
  Receive Date: 20240515
  Receipt Date: 20240715
  Transmission Date: 20241017
  Serious: No
  Sender: ALEXION PHARMACEUTICALS
  Company Number: US-AstraZeneca-CH-00622168A

PATIENT

DRUGS (2)
  1. ULTOMIRIS [Suspect]
     Active Substance: RAVULIZUMAB-CWVZ
     Indication: Neuromyelitis optica spectrum disorder
     Dosage: UNK
     Route: 042
  2. RITUXIMAB [Suspect]
     Active Substance: RITUXIMAB
     Indication: Product used for unknown indication
     Dosage: UNK
     Route: 065

REACTIONS (7)
  - Burning sensation [Not Recovered/Not Resolved]
  - Peroneal nerve palsy [Unknown]
  - Periarthritis [Unknown]
  - Urinary incontinence [Unknown]
  - Anal incontinence [Unknown]
  - Sensory loss [Unknown]
  - Middle insomnia [Unknown]
